FAERS Safety Report 18288056 (Version 2)
Quarter: 2020Q4

REPORT INFORMATION
  Report Type: Spontaneous
  Country: CA (occurrence: CA)
  Receive Date: 20200921
  Receipt Date: 20201029
  Transmission Date: 20210113
  Serious: Yes (Disabling)
  Sender: FDA-Public Use
  Company Number: CA-ROCHE-2678472

PATIENT
  Age: 60 Year
  Sex: Male
  Weight: 98 kg

DRUGS (6)
  1. ASA [Concomitant]
     Active Substance: ASPIRIN
  2. SULFAMETHOXAZOLE/TRIMETHOPRIM [Concomitant]
     Active Substance: SULFAMETHOXAZOLE\TRIMETHOPRIM
  3. DECADRON [Concomitant]
     Active Substance: DEXAMETHASONE
  4. GRASTOFIL [Concomitant]
     Active Substance: FILGRASTIM
     Route: 042
  5. RITUXAN [Suspect]
     Active Substance: RITUXIMAB
     Indication: NON-HODGKIN^S LYMPHOMA
     Route: 042
     Dates: start: 2020, end: 20200408
  6. TOPICORT [Concomitant]
     Active Substance: DESOXIMETASONE

REACTIONS (4)
  - Muscular weakness [Not Recovered/Not Resolved]
  - Progressive multifocal leukoencephalopathy [Not Recovered/Not Resolved]
  - JC polyomavirus test positive [Not Recovered/Not Resolved]
  - Hypoaesthesia [Not Recovered/Not Resolved]

NARRATIVE: CASE EVENT DATE: 20200331
